FAERS Safety Report 21438988 (Version 1)
Quarter: 2022Q4

REPORT INFORMATION
  Report Type: Spontaneous
  Country: US (occurrence: None)
  Receive Date: 20221007
  Receipt Date: 20221007
  Transmission Date: 20230112
  Serious: Yes (Death)
  Sender: FDA-Public Use
  Company Number: None

PATIENT
  Age: 77 Year
  Sex: Female

DRUGS (7)
  1. CYRAMZA [Suspect]
     Active Substance: RAMUCIRUMAB
     Indication: Colon cancer
     Dosage: 660ML Q14 DAYS IV
     Route: 042
  2. SODIUM CHLORIDE [Suspect]
     Active Substance: SODIUM CHLORIDE
     Indication: Colon cancer
     Dosage: 10ML AS DIRECTED IV?
     Route: 042
  3. ELIQUIS [Concomitant]
     Active Substance: APIXABAN
  4. HYDROCKLOROTHIAZIDE [Concomitant]
  5. LEVOTHYROXINE SODIUM [Concomitant]
     Active Substance: LEVOTHYROXINE SODIUM
  6. METOPROLOL [Concomitant]
     Active Substance: METOPROLOL
  7. VITAMIN C [Concomitant]
     Active Substance: ASCORBIC ACID

REACTIONS (1)
  - Death [None]
